FAERS Safety Report 16930757 (Version 1)
Quarter: 2019Q4

REPORT INFORMATION
  Report Type: Spontaneous
  Country: US (occurrence: US)
  Receive Date: 20191017
  Receipt Date: 20191017
  Transmission Date: 20200122
  Serious: Yes (Other)
  Sender: FDA-Public Use
  Company Number: None

PATIENT

DRUGS (1)
  1. ROCURONIUM [Suspect]
     Active Substance: ROCURONIUM BROMIDE
     Route: 040

REACTIONS (3)
  - Product quality issue [None]
  - Intentional product use issue [None]
  - Drug ineffective [None]

NARRATIVE: CASE EVENT DATE: 20191016
